FAERS Safety Report 19846048 (Version 1)
Quarter: 2021Q3

REPORT INFORMATION
  Report Type: Spontaneous
  Country: CN (occurrence: CN)
  Receive Date: 20210917
  Receipt Date: 20210917
  Transmission Date: 20211014
  Serious: Yes (Hospitalization)
  Sender: FDA-Public Use
  Company Number: CN-CELGENEUS-CHN-20210902162

PATIENT
  Age: 49 Year
  Sex: Female
  Weight: 49 kg

DRUGS (16)
  1. ABRAXANE [Suspect]
     Active Substance: PACLITAXEL
     Route: 041
  2. PAEONIA LACTIFLORA ROOT [Concomitant]
     Active Substance: PAEONIA LACTIFLORA ROOT
     Indication: PRODUCT USED FOR UNKNOWN INDICATION
     Route: 065
  3. POLYGONATUM MULTIFLORUM ROOT. [Concomitant]
     Active Substance: POLYGONATUM MULTIFLORUM ROOT
     Indication: PRODUCT USED FOR UNKNOWN INDICATION
     Route: 065
  4. CARBOPLATIN. [Suspect]
     Active Substance: CARBOPLATIN
     Indication: NON-SMALL CELL LUNG CANCER
     Route: 041
     Dates: start: 20210810
  5. TISLELIZUMAB [Suspect]
     Active Substance: TISLELIZUMAB
     Route: 041
  6. MORUS ALBA FRUIT [Concomitant]
     Indication: PRODUCT USED FOR UNKNOWN INDICATION
     Route: 065
  7. CIBOTIUM BAROMETZ RHIZOME [Concomitant]
     Indication: PRODUCT USED FOR UNKNOWN INDICATION
     Route: 065
  8. RECOMBINANT HUMAN GRANULOCYTE COLONY?STIMULATING FACTOR [Concomitant]
     Active Substance: GRANULOCYTE COLONY-STIMULATING FACTOR NOS
     Indication: PRODUCT USED FOR UNKNOWN INDICATION
     Route: 065
     Dates: start: 20210819
  9. CARBOPLATIN. [Suspect]
     Active Substance: CARBOPLATIN
     Route: 041
  10. SHENGXUEBAO HEJI [Concomitant]
     Indication: PRODUCT USED FOR UNKNOWN INDICATION
     Route: 065
  11. ECLIPTA PROSTRATA HERB [Concomitant]
     Indication: PRODUCT USED FOR UNKNOWN INDICATION
     Route: 065
  12. ABRAXANE [Suspect]
     Active Substance: PACLITAXEL
     Indication: NON-SMALL CELL LUNG CANCER
     Route: 041
     Dates: start: 20210810
  13. LIGUSTRUM LUCIDUM FRUIT [Concomitant]
     Indication: PRODUCT USED FOR UNKNOWN INDICATION
     Route: 065
  14. TISLELIZUMAB [Suspect]
     Active Substance: TISLELIZUMAB
     Indication: NON-SMALL CELL LUNG CANCER
     Route: 041
     Dates: start: 20210810
  15. ASTRAGALUS PROPINQUUS ROOT. [Concomitant]
     Active Substance: ASTRAGALUS PROPINQUUS ROOT
     Indication: PRODUCT USED FOR UNKNOWN INDICATION
     Route: 065
  16. INTERLEUKIN?11 [Concomitant]
     Active Substance: OPRELVEKIN
     Indication: PRODUCT USED FOR UNKNOWN INDICATION
     Route: 065

REACTIONS (1)
  - Myelosuppression [Not Recovered/Not Resolved]

NARRATIVE: CASE EVENT DATE: 20210828
